FAERS Safety Report 4702198-4 (Version None)
Quarter: 2005Q2

REPORT INFORMATION
  Report Type: 
  Country: None (occurrence: None)
  Receive Date: 20050629
  Receipt Date: 20050620
  Transmission Date: 20051028
  Serious: Yes (Other)
  Sender: FDA-Public Use
  Company Number: 200511825JP

PATIENT
  Age: 38 Year
  Sex: Female

DRUGS (3)
  1. KETEK [Suspect]
     Indication: ACUTE SINUSITIS
     Dosage: DOSE: 2TABLETS
     Route: 048
     Dates: start: 20050618
  2. ALESION [Concomitant]
     Dosage: DOSE: 1TABLET
     Route: 048
     Dates: start: 20050618
  3. EMPYNASE [Concomitant]
     Dosage: DOSE: 3TABLETS
     Route: 048
     Dates: start: 20050618

REACTIONS (3)
  - FACIAL PALSY [None]
  - HYPOAESTHESIA [None]
  - STRESS [None]
